FAERS Safety Report 21574597 (Version 1)
Quarter: 2022Q4

REPORT INFORMATION
  Report Type: Spontaneous
  Country: US (occurrence: None)
  Receive Date: 20221109
  Receipt Date: 20221109
  Transmission Date: 20230113
  Serious: Yes (Disabling)
  Sender: FDA-Public Use
  Company Number: None

PATIENT
  Age: 90 Year
  Sex: Female

DRUGS (2)
  1. ARIMIDEX [Suspect]
     Active Substance: ANASTROZOLE
     Indication: Breast cancer
     Dates: start: 200412, end: 200712
  2. RESTASIS [Suspect]
     Active Substance: CYCLOSPORINE

REACTIONS (3)
  - Breast cancer [None]
  - Adverse drug reaction [None]
  - Product administration error [None]

NARRATIVE: CASE EVENT DATE: 20041216
